FAERS Safety Report 4650843-4 (Version None)
Quarter: 2005Q2

REPORT INFORMATION
  Report Type: 
  Country: None (occurrence: None)
  Receive Date: 20050503
  Receipt Date: 20050316
  Transmission Date: 20051028
  Serious: Yes (Other)
  Sender: FDA-Public Use
  Company Number: US-SANOFI-SYNTHELABO-A03200500748

PATIENT
  Sex: Female
  Weight: 77.1 kg

DRUGS (4)
  1. AMBIEN [Suspect]
     Indication: INSOMNIA
     Dosage: UNK
     Route: 048
     Dates: start: 20030401, end: 20041201
  2. TOPROL-XL [Concomitant]
     Route: 048
  3. ZOLOFT [Concomitant]
     Route: 048
  4. PRAVACHOL [Concomitant]
     Route: 048

REACTIONS (6)
  - DIZZINESS [None]
  - DRUG INEFFECTIVE [None]
  - GASTROOESOPHAGEAL REFLUX DISEASE [None]
  - INSOMNIA [None]
  - LARYNGEAL PAIN [None]
  - TRANSIENT ISCHAEMIC ATTACK [None]
